FAERS Safety Report 15696381 (Version 1)
Quarter: 2018Q4

REPORT INFORMATION
  Report Type: Other
  Country: CA (occurrence: CA)
  Receive Date: 20181206
  Receipt Date: 20181206
  Transmission Date: 20190205
  Serious: Yes (Hospitalization)
  Sender: FDA-Public Use
  Company Number: CA-HLSUS-2018-CA-001560

PATIENT
  Age: 74 Year
  Sex: Male

DRUGS (1)
  1. CLOZARIL [Suspect]
     Active Substance: CLOZAPINE
     Route: 048
     Dates: start: 19960806

REACTIONS (4)
  - Pericarditis [Unknown]
  - Chest pain [Unknown]
  - Platelet count decreased [None]
  - C-reactive protein increased [Unknown]

NARRATIVE: CASE EVENT DATE: 2017
